FAERS Safety Report 4894406-4 (Version None)
Quarter: 2006Q1

REPORT INFORMATION
  Report Type: 
  Country: None (occurrence: None)
  Receive Date: 20060127
  Receipt Date: 20051215
  Transmission Date: 20060701
  Serious: Yes (Death, Life-Threatening, Hospitalization)
  Sender: FDA-Public Use
  Company Number: UG-GILEAD-2005-0009028

PATIENT
  Sex: Female

DRUGS (3)
  1. TENOFOVIR DISOPROXIL FUMARATE [Suspect]
     Indication: HIV INFECTION
  2. ZIDOVUDINE [Concomitant]
  3. LAMIVUDINE [Concomitant]

REACTIONS (2)
  - BLOOD PRESSURE INCREASED [None]
  - RENAL FAILURE [None]
